FAERS Safety Report 10506580 (Version 1)
Quarter: 2014Q3

REPORT INFORMATION
  Report Type: Spontaneous
  Country: US (occurrence: None)
  Receive Date: 20140915
  Receipt Date: 20140915
  Transmission Date: 20150326
  Serious: Yes (Other)
  Sender: FDA-Public Use
  Company Number: JPI-P-031893

PATIENT
  Age: 44 Year
  Sex: Female
  Weight: 70.3 kg

DRUGS (4)
  1. ANTIDEPRESSANTS (ANTIDEPRESSANTS) [Suspect]
     Active Substance: UNSPECIFIED INGREDIENT
     Indication: DEPRESSION
  2. XYREM [Suspect]
     Active Substance: SODIUM OXYBATE
     Indication: NARCOLEPSY
     Route: 048
     Dates: start: 201011, end: 2010
  3. LAMICTAL [Concomitant]
     Active Substance: LAMOTRIGINE
  4. NUVIGIL [Concomitant]
     Active Substance: ARMODAFINIL

REACTIONS (5)
  - Restless legs syndrome [None]
  - Asthenia [None]
  - Insomnia [None]
  - Weight decreased [None]
  - Sensory disturbance [None]

NARRATIVE: CASE EVENT DATE: 201011
